FAERS Safety Report 20811051 (Version 1)
Quarter: 2022Q2

REPORT INFORMATION
  Report Type: Spontaneous
  Country: FI (occurrence: FI)
  Receive Date: 20220510
  Receipt Date: 20220510
  Transmission Date: 20220721
  Serious: Yes (Other)
  Sender: FDA-Public Use
  Company Number: FI-ORGANON-O2204FIN001934

PATIENT
  Sex: Female

DRUGS (2)
  1. NEXPLANON [Suspect]
     Active Substance: ETONOGESTREL
     Dosage: 1 IMPLANT, INSERTED 3 YEARS AGO (IN LEFT HAND)
     Route: 059
     Dates: start: 20190325, end: 20220325
  2. NEXPLANON [Suspect]
     Active Substance: ETONOGESTREL
     Dosage: 1 IMPLANT
     Route: 059
     Dates: start: 20220325, end: 20220426

REACTIONS (2)
  - Device expulsion [Recovered/Resolved]
  - Implant site inflammation [Recovered/Resolved]

NARRATIVE: CASE EVENT DATE: 20220101
